FAERS Safety Report 6052963-9 (Version None)
Quarter: 2009Q1

REPORT INFORMATION
  Report Type: 
  Country: None (occurrence: None)
  Receive Date: 20090127
  Receipt Date: 20080905
  Transmission Date: 20090719
  Serious: No
  Sender: FDA-Public Use
  Company Number: US-ABBOTT-08P-163-0474713-00

PATIENT
  Sex: Male
  Weight: 90.8 kg

DRUGS (3)
  1. LUPRON DEPOT [Suspect]
     Indication: PROSTATE CANCER
     Route: 030
     Dates: start: 20040601
  2. 16 PILLS FOR GUILLAIN BARRE SYNDROME [Concomitant]
     Indication: GUILLAIN-BARRE SYNDROME
  3. 40 OTHER UNKNOWN MEDICATIONS [Concomitant]
     Indication: DRUG USE FOR UNKNOWN INDICATION

REACTIONS (2)
  - HOT FLUSH [None]
  - MOOD SWINGS [None]
